FAERS Safety Report 6253324-X (Version None)
Quarter: 2009Q3

REPORT INFORMATION
  Report Type: 
  Country: None (occurrence: None)
  Receive Date: 20090701
  Receipt Date: 20090619
  Transmission Date: 20100115
  Serious: Yes (Hospitalization)
  Sender: FDA-Public Use
  Company Number: FR-ROCHE-598470

PATIENT
  Sex: Female
  Weight: 78 kg

DRUGS (2)
  1. CAPECITABINE [Suspect]
     Indication: COLORECTAL CANCER
     Dosage: DATE OF LAST DOSE PRIOR TO SAE: 28 MARCH 2008
     Route: 048
     Dates: start: 20080303, end: 20080328
  2. OXALIPLATINE [Suspect]
     Indication: COLORECTAL CANCER
     Dosage: DATE OF LAST DOSE PRIOR TO SAE: 25 MARCH 2008
     Route: 042
     Dates: start: 20080303, end: 20080325

REACTIONS (1)
  - GASTROINTESTINAL TOXICITY [None]
